FAERS Safety Report 4335777-7 (Version None)
Quarter: 2004Q2

REPORT INFORMATION
  Report Type: 
  Country: None (occurrence: None)
  Receive Date: 20040406
  Receipt Date: 20040324
  Transmission Date: 20050107
  Serious: Yes (Hospitalization)
  Sender: FDA-Public Use
  Company Number: 04P-144-0254744-00

PATIENT
  Age: 42 Year
  Sex: Male
  Weight: 68.5 kg

DRUGS (4)
  1. KALETRA [Suspect]
     Indication: HIV INFECTION
     Dosage: 3 CAPSULE, 2 IN 1 D, PER ORAL
     Route: 048
     Dates: start: 20021025, end: 20040206
  2. KALETRA [Suspect]
     Indication: HIV INFECTION
     Dosage: 3 CAPSULE, 2 IN 1 D, PER ORAL
     Route: 048
     Dates: start: 20040316
  3. DIDANOSINE [Concomitant]
  4. STAVUDINE [Concomitant]

REACTIONS (5)
  - ASCITES [None]
  - HYPOXIA [None]
  - JAUNDICE [None]
  - OEDEMA PERIPHERAL [None]
  - WEIGHT DECREASED [None]
